FAERS Safety Report 6714497-5 (Version None)
Quarter: 2010Q2

REPORT INFORMATION
  Report Type: 
  Country: None (occurrence: None)
  Receive Date: 20100506
  Receipt Date: 20100427
  Transmission Date: 20101027
  Serious: Yes (Life-Threatening, Hospitalization)
  Sender: FDA-Public Use
  Company Number: CA-AMGEN-QUU408770

PATIENT
  Sex: Female
  Weight: 65.8 kg

DRUGS (13)
  1. ENBREL [Suspect]
     Indication: DRUG USE FOR UNKNOWN INDICATION
     Route: 058
  2. ACTONEL [Concomitant]
     Route: 065
  3. BETAHISTINE [Concomitant]
     Route: 065
  4. CALCIUM [Concomitant]
     Route: 065
  5. CARVEDILOL [Concomitant]
     Route: 065
  6. FERROUS GLUCONATE [Concomitant]
     Route: 065
  7. FOLIC ACID [Concomitant]
     Route: 065
  8. UNSPECIFIED MEDICATION [Concomitant]
     Route: 065
  9. NAPROSYN [Concomitant]
     Route: 065
  10. PANTOPRAZOLE [Concomitant]
     Route: 065
  11. SYNTHROID [Concomitant]
     Route: 065
  12. VASOTEC [Concomitant]
     Route: 065
  13. ZANTAC [Concomitant]
     Route: 065

REACTIONS (4)
  - HAEMOGLOBIN DECREASED [None]
  - MYELOID LEUKAEMIA [None]
  - PLATELET COUNT DECREASED [None]
  - WHITE BLOOD CELL COUNT DECREASED [None]
